FAERS Safety Report 9553656 (Version 2)
Quarter: 2013Q4

REPORT INFORMATION
  Report Type: Report from Study
  Country: US (occurrence: US)
  Receive Date: 20130925
  Receipt Date: 20131009
  Transmission Date: 20140711
  Serious: Yes (Hospitalization, Other)
  Sender: FDA-Public Use
  Company Number: US-ACTELION-A-NJ2013-88725

PATIENT
  Age: 56 Year
  Sex: Male

DRUGS (6)
  1. VELETRI [Suspect]
     Indication: PULMONARY ARTERIAL HYPERTENSION
     Dosage: 44 UNK, UNK
     Route: 042
     Dates: start: 20120531, end: 20130823
  2. VELETRI [Suspect]
     Dosage: 26 UNK, UNK
     Route: 042
     Dates: start: 20120602
  3. TRACLEER [Concomitant]
     Indication: PULMONARY ARTERIAL HYPERTENSION
     Dosage: 125 MG (TITER), UNK
     Route: 048
     Dates: end: 20120824
  4. TRACLEER [Concomitant]
     Dosage: 62.5 MG, BID
     Route: 048
     Dates: start: 20090913
  5. TRACLEER [Concomitant]
     Dosage: 125 MG, BID
     Route: 048
     Dates: start: 20091013
  6. SILDENAFIL [Concomitant]

REACTIONS (1)
  - Heart and lung transplant [Recovered/Resolved]
